FAERS Safety Report 12174779 (Version 2)
Quarter: 2016Q1

REPORT INFORMATION
  Report Type: Spontaneous
  Country: DE (occurrence: DE)
  Receive Date: 20160314
  Receipt Date: 20160315
  Transmission Date: 20160526
  Serious: Yes (Death, Life-Threatening, Hospitalization, Other)
  Sender: FDA-Public Use
  Company Number: DE-009507513-1603DEU003770

PATIENT
  Age: 71 Year
  Sex: Male
  Weight: 60 kg

DRUGS (20)
  1. METOPROLOL. [Concomitant]
     Active Substance: METOPROLOL
     Dosage: 0.5 DOSAGE FORM EVERY DAY, LONG TERM MEDICATION
     Route: 065
     Dates: end: 20160221
  2. FREKAVIT FAT SOLUBLE EMULSION [Concomitant]
     Dosage: UNK
     Route: 042
     Dates: start: 20160220, end: 20160223
  3. STEROFUNDIN [Concomitant]
     Dosage: 1 L, UNK
     Route: 042
     Dates: start: 20160218, end: 20160218
  4. PANTOZOL [Concomitant]
     Active Substance: PANTOPRAZOLE SODIUM
     Dosage: 40 MG EVERY DAY
     Route: 042
     Dates: start: 20160224
  5. KONAKION [Concomitant]
     Active Substance: PHYTONADIONE
     Dosage: 10 MG, UNK
     Route: 042
     Dates: start: 20160224, end: 20160224
  6. CLEXANE (ENOXAPARIN SODIUM) [Concomitant]
     Active Substance: ENOXAPARIN SODIUM
     Indication: THROMBOSIS PROPHYLAXIS
     Dosage: 1 DOSAGE FORM EVERY DAY
     Route: 058
     Dates: start: 20160218, end: 20160224
  7. AMANTADINE [Concomitant]
     Active Substance: AMANTADINE
     Dosage: 200 MG EVERY DAY (100 MG BID), LONG TERM MEDICATION
     Dates: end: 20160221
  8. ROCEPHIN [Concomitant]
     Active Substance: CEFTRIAXONE SODIUM
     Dosage: 2 G EVERY DAY
     Route: 042
     Dates: start: 20160219, end: 20160222
  9. POTASSIUM CHLORIDE. [Concomitant]
     Active Substance: POTASSIUM CHLORIDE
     Dosage: 40 MVAL
     Route: 042
     Dates: start: 20160220, end: 20160223
  10. ASPIRIN. [Concomitant]
     Active Substance: ASPIRIN
     Dosage: 100 MG EVERY DAY, LONG TERM MEDICATION
     Route: 048
     Dates: end: 20160221
  11. DEXTROSE. [Concomitant]
     Active Substance: DEXTROSE
     Dosage: UNK
     Route: 042
     Dates: start: 20160220, end: 20160223
  12. MOTILIUM [Concomitant]
     Active Substance: DOMPERIDONE
     Indication: COLONIC PSEUDO-OBSTRUCTION
     Dosage: 20 MG EVERY DAY (10 MG BID)
     Route: 048
     Dates: start: 20160222, end: 20160224
  13. ENTEROL (SACCHAROMYCES BOULARDII) [Concomitant]
     Indication: PROPHYLAXIS
     Dosage: 1 DOSAGE FORM EVERY DAY
     Route: 048
     Dates: start: 20160224, end: 20160224
  14. AMINOVEN [Concomitant]
     Active Substance: AMINO ACIDS
     Dosage: 1 L, UNK
     Route: 040
     Dates: start: 20160219, end: 20160225
  15. CLONT [Concomitant]
     Dosage: 1500 MG EVERY DAY (500 MG TID)
     Route: 042
     Dates: start: 20160219, end: 20160224
  16. LIPOSYN [Concomitant]
     Active Substance: SAFFLOWER OIL
     Dosage: 250 ML, UNK
     Route: 042
     Dates: start: 20160220, end: 20160223
  17. IMIPENEM AND CILASTATIN [Suspect]
     Active Substance: CILASTATIN SODIUM\IMIPENEM
     Indication: URINARY TRACT INFECTION
     Dosage: 2 IN 1 DAY
     Route: 042
     Dates: start: 20160222, end: 20160223
  18. IMIPENEM AND CILASTATIN [Suspect]
     Active Substance: CILASTATIN SODIUM\IMIPENEM
     Dosage: 1 DF 1 DAY
     Route: 042
     Dates: start: 20160224, end: 20160224
  19. SIMVASTATIN. [Concomitant]
     Active Substance: SIMVASTATIN
     Dosage: 20 MG EVERY DAY, LONG TERM MEDICATION
     Route: 065
     Dates: end: 20160221
  20. NEXIUM [Concomitant]
     Active Substance: ESOMEPRAZOLE MAGNESIUM
     Dosage: 40 MG EVERY DAY, LONG TERM MEDICATION
     Route: 065
     Dates: end: 20160221

REACTIONS (2)
  - Liver function test abnormal [Unknown]
  - Hepatic failure [Fatal]

NARRATIVE: CASE EVENT DATE: 20160224
